FAERS Safety Report 8201434-X (Version None)
Quarter: 2012Q1

REPORT INFORMATION
  Report Type: 
  Country: None (occurrence: None)
  Receive Date: 20120307
  Receipt Date: 20120222
  Transmission Date: 20120608
  Serious: Yes (Other)
  Sender: FDA-Public Use
  Company Number: 2012GB0077

PATIENT
  Sex: Female

DRUGS (6)
  1. HEAD RADIOTHERAPY (RADIO THERAPY) [Concomitant]
  2. DENDITRIC CELL VACCINATION (DENDITRIC CELLS, TUMOR ANTIGENS) [Concomitant]
  3. TAXOL [Concomitant]
  4. OXYCODONE HYDROCHLORIDE [Concomitant]
  5. KINERET [Suspect]
     Indication: BREAST CANCER
     Dosage: - (1 IN 1 WK) INJECTION
     Dates: start: 20111222
  6. TRAMADOL HCL [Concomitant]

REACTIONS (5)
  - DISEASE PROGRESSION [None]
  - PAIN [None]
  - MALAISE [None]
  - BEDRIDDEN [None]
  - REFUSAL OF TREATMENT BY PATIENT [None]
